FAERS Safety Report 15279770 (Version 1)
Quarter: 2018Q3

REPORT INFORMATION
  Report Type: Spontaneous
  Country: US (occurrence: US)
  Receive Date: 20180730
  Receipt Date: 20180730
  Transmission Date: 20181010
  Serious: Yes (Other)
  Sender: FDA-Public Use
  Company Number: None

PATIENT
  Age: 34 Year
  Sex: Female
  Weight: 49.95 kg

DRUGS (2)
  1. FLONASE [Concomitant]
     Active Substance: FLUTICASONE PROPIONATE
  2. FLUVOXAMINE ER [Suspect]
     Active Substance: FLUVOXAMINE
     Indication: OBSESSIVE-COMPULSIVE DISORDER
     Dosage: ?          QUANTITY:2 DF DOSAGE FORM;?
     Route: 048
     Dates: start: 20180429, end: 20180728

REACTIONS (9)
  - Depression [None]
  - Feeling abnormal [None]
  - Insomnia [None]
  - Impaired work ability [None]
  - Anxiety [None]
  - Decreased appetite [None]
  - Intrusive thoughts [None]
  - Dysgeusia [None]
  - Weight decreased [None]

NARRATIVE: CASE EVENT DATE: 20180719
